FAERS Safety Report 4622284-7 (Version None)
Quarter: 2005Q1

REPORT INFORMATION
  Report Type: 
  Country: None (occurrence: None)
  Receive Date: 20050324
  Receipt Date: 20050324
  Transmission Date: 20050727
  Serious: No
  Sender: FDA-Public Use
  Company Number: None

PATIENT
  Sex: Male
  Weight: 49 kg

DRUGS (4)
  1. METHADONE 5MG/5ML SOLUTION [Suspect]
     Dosage: 20MG DAILY PO
     Route: 048
     Dates: start: 20041219, end: 20041220
  2. ZOFRAN [Concomitant]
  3. HALCION [Concomitant]
  4. REGLAN [Concomitant]

REACTIONS (2)
  - DEPRESSED LEVEL OF CONSCIOUSNESS [None]
  - LETHARGY [None]
